FAERS Safety Report 18337922 (Version 1)
Quarter: 2020Q4

REPORT INFORMATION
  Report Type: Spontaneous
  Country: US (occurrence: US)
  Receive Date: 20201001
  Receipt Date: 20201001
  Transmission Date: 20210113
  Serious: Yes (Hospitalization)
  Sender: FDA-Public Use
  Company Number: None

PATIENT
  Age: 79 Year
  Sex: Male
  Weight: 87.4 kg

DRUGS (2)
  1. REMDESIVIR INJECTION (IYOPHILIZED POWDER) [Suspect]
     Active Substance: REMDESIVIR
     Indication: SARS-COV-2 TEST POSITIVE
     Route: 042
     Dates: start: 20200915, end: 20200917
  2. AMIODARONE INJECTABLE [Concomitant]
     Dates: start: 20200916, end: 20200916

REACTIONS (4)
  - Cardio-respiratory arrest [None]
  - Aspartate aminotransferase increased [None]
  - Alanine aminotransferase increased [None]
  - Bradycardia [None]

NARRATIVE: CASE EVENT DATE: 20200916
